FAERS Safety Report 24270433 (Version 1)
Quarter: 2024Q3

REPORT INFORMATION
  Report Type: Other
  Country: DE (occurrence: DE)
  Receive Date: 20240830
  Receipt Date: 20240830
  Transmission Date: 20241017
  Serious: No
  Sender: SIGA TECHNOLOGIES
  Company Number: DE-SIGA Technologies, Inc.-2161065

PATIENT
  Age: 40 Year
  Sex: Male

DRUGS (1)
  1. TPOXX [Suspect]
     Active Substance: TECOVIRIMAT
     Indication: Monkeypox
     Route: 048

REACTIONS (1)
  - Transaminases increased [Recovered/Resolved]
